FAERS Safety Report 12157103 (Version 2)
Quarter: 2016Q2

REPORT INFORMATION
  Report Type: Spontaneous
  Country: JP (occurrence: JP)
  Receive Date: 20160307
  Receipt Date: 20160413
  Transmission Date: 20160815
  Serious: Yes (Hospitalization, Other)
  Sender: FDA-Public Use
  Company Number: JP-ROCHE-1651320

PATIENT
  Age: 59 Year
  Sex: Female
  Weight: 44 kg

DRUGS (9)
  1. ELPLAT [Suspect]
     Active Substance: OXALIPLATIN
     Indication: GASTRIC CANCER
     Dosage: SINGLE DOSE ADMINISTRATION
     Route: 041
     Dates: start: 20150604, end: 20150604
  2. ELPLAT [Suspect]
     Active Substance: OXALIPLATIN
     Indication: GASTRIC CANCER
     Dosage: SINGLE DOSE ADMINISTRATION
     Route: 041
     Dates: start: 20150925, end: 20150925
  3. XELODA [Suspect]
     Active Substance: CAPECITABINE
     Indication: GASTRIC CANCER
     Dosage: 2-3 COURSES?1500 MG
     Route: 048
     Dates: start: 20150514, end: 20150617
  4. XELODA [Suspect]
     Active Substance: CAPECITABINE
     Indication: GASTRIC CANCER
     Dosage: 2 WEEKS ADMINISTRATION FOLLOWED BY 1 WEEK REST
     Route: 048
     Dates: start: 20150716, end: 20150819
  5. XELODA [Suspect]
     Active Substance: CAPECITABINE
     Indication: GASTRIC CANCER
     Dosage: 2 WEEKS ADMINISTRATION FOLLOWED BY 1 WEEK REST
     Route: 048
     Dates: start: 20150827, end: 20150909
  6. ELPLAT [Suspect]
     Active Substance: OXALIPLATIN
     Indication: GASTRIC CANCER
     Dosage: SINGLE DOSE ADMINISTRATION
     Route: 041
     Dates: start: 20150514, end: 20150514
  7. ELPLAT [Suspect]
     Active Substance: OXALIPLATIN
     Indication: GASTRIC CANCER
     Dosage: SINGLE DOSE ADMINISTRATION
     Route: 041
     Dates: start: 20150806, end: 20150806
  8. ELPLAT [Suspect]
     Active Substance: OXALIPLATIN
     Indication: GASTRIC CANCER
     Dosage: SINGLE DOSE ADMINISTRATION
     Route: 041
     Dates: start: 20150827, end: 20150827
  9. ELPLAT [Suspect]
     Active Substance: OXALIPLATIN
     Indication: GASTRIC CANCER
     Dosage: SINGLE DOSE ADMINISTRATION
     Route: 041
     Dates: start: 20150716, end: 20150716

REACTIONS (4)
  - Anaemia [Recovered/Resolved]
  - Neutrophil count decreased [Recovered/Resolved]
  - Tumour haemorrhage [Unknown]
  - White blood cell count decreased [Recovered/Resolved]

NARRATIVE: CASE EVENT DATE: 20150625
